FAERS Safety Report 13108490 (Version 1)
Quarter: 2017Q1

REPORT INFORMATION
  Report Type: Spontaneous
  Country: US (occurrence: US)
  Receive Date: 20170111
  Receipt Date: 20170111
  Transmission Date: 20170428
  Serious: Yes (Other)
  Sender: FDA-Public Use
  Company Number: None

PATIENT
  Age: 33 Year
  Sex: Female
  Weight: 85.5 kg

DRUGS (6)
  1. BIRTH CONTROL [Concomitant]
     Active Substance: UNSPECIFIED INGREDIENT
  2. XARELTO [Suspect]
     Active Substance: RIVAROXABAN
     Indication: DEEP VEIN THROMBOSIS
     Dosage: ?          QUANTITY:1 TABLET(S);?
     Route: 048
     Dates: start: 20161110, end: 20161121
  3. MAGNESIUM [Concomitant]
     Active Substance: MAGNESIUM
  4. TURMERIC [Concomitant]
     Active Substance: TURMERIC
  5. VITAMIN D [Concomitant]
     Active Substance: CHOLECALCIFEROL
  6. METFORMIN [Concomitant]
     Active Substance: METFORMIN HYDROCHLORIDE

REACTIONS (8)
  - Back pain [None]
  - Fatigue [None]
  - Pruritus generalised [None]
  - Nausea [None]
  - Dyspnoea [None]
  - Groin pain [None]
  - Abdominal distension [None]
  - Syncope [None]

NARRATIVE: CASE EVENT DATE: 20161118
